FAERS Safety Report 7793438-6 (Version None)
Quarter: 2011Q4

REPORT INFORMATION
  Report Type: 
  Country: None (occurrence: None)
  Receive Date: 20111003
  Receipt Date: 20110927
  Transmission Date: 20120403
  Serious: Yes (Death, Hospitalization, Other)
  Sender: FDA-Public Use
  Company Number: PHHY2011NL72272

PATIENT
  Age: 65 Year
  Sex: Female

DRUGS (6)
  1. AMITRIPTYLINE HCL [Suspect]
     Dosage: 250 MG, QD
  2. AMITRIPTYLINE HCL [Interacting]
     Dosage: 50 MG,
  3. PROMETHAZINE [Concomitant]
     Dosage: 25 MG, UNK
  4. CLOZAPINE [Interacting]
     Dosage: 300 MG, QD
  5. ACETAMINOPHEN [Concomitant]
     Dosage: 500 MG, UNK
  6. CLOZAPINE [Interacting]
     Indication: SCHIZOPHRENIA
     Dosage: 100 MG,

REACTIONS (9)
  - HUMERUS FRACTURE [None]
  - INFLAMMATION [None]
  - BRONCHOALVEOLAR LAVAGE ABNORMAL [None]
  - ANTIPSYCHOTIC DRUG LEVEL ABOVE THERAPEUTIC [None]
  - DRUG INTERACTION [None]
  - TOXICITY TO VARIOUS AGENTS [None]
  - INTERSTITIAL LUNG DISEASE [None]
  - PULMONARY TOXICITY [None]
  - RESPIRATORY FAILURE [None]
